FAERS Safety Report 4300294-7 (Version None)
Quarter: 2004Q1

REPORT INFORMATION
  Report Type: 
  Country: None (occurrence: None)
  Receive Date: 20040218
  Receipt Date: 20040218
  Transmission Date: 20041129
  Serious: No
  Sender: FDA-Public Use
  Company Number: None

PATIENT
  Sex: 0

DRUGS (2)
  1. PREVACID [Suspect]
     Dosage: SAMPLES
  2. ALLEGRA [Suspect]
     Dosage: SAMPLES

REACTIONS (1)
  - MEDICATION ERROR [None]
